FAERS Safety Report 15474360 (Version 2)
Quarter: 2018Q4

REPORT INFORMATION
  Report Type: Spontaneous
  Country: SE (occurrence: SE)
  Receive Date: 20181008
  Receipt Date: 20181010
  Transmission Date: 20190205
  Serious: Yes (Life-Threatening, Hospitalization, Disabling)
  Sender: FDA-Public Use
  Company Number: SE-JNJFOC-20181006969

PATIENT
  Age: 49 Year
  Sex: Female
  Weight: 53 kg

DRUGS (1)
  1. RISPERDAL [Suspect]
     Active Substance: RISPERIDONE
     Indication: PRODUCT USED FOR UNKNOWN INDICATION
     Dosage: FLYTANDE 6 MG/DAG
     Route: 065
     Dates: start: 20170619, end: 20170704

REACTIONS (2)
  - Parkinson^s disease [Not Recovered/Not Resolved]
  - Cardiac disorder [Not Recovered/Not Resolved]

NARRATIVE: CASE EVENT DATE: 2017
